FAERS Safety Report 24448058 (Version 1)
Quarter: 2024Q4

REPORT INFORMATION
  Report Type: Spontaneous
  Country: US (occurrence: US)
  Receive Date: 20241016
  Receipt Date: 20241016
  Transmission Date: 20250114
  Serious: Yes (Other)
  Sender: DR REDDYS
  Company Number: US-DRL-USA-LIT/USA/24/0015150

PATIENT
  Age: 68 Year
  Sex: Male

DRUGS (17)
  1. ATORVASTATIN [Suspect]
     Active Substance: ATORVASTATIN
     Indication: Hyperlipidaemia
     Dosage: 80 MG, 1 TABLET AT BEDTIME
  2. ATORVASTATIN [Suspect]
     Active Substance: ATORVASTATIN
  3. FLUOXETINE [Suspect]
     Active Substance: FLUOXETINE HYDROCHLORIDE
     Indication: Anxiety disorder
     Dosage: 1 CAPSULE ONCE A DAY
  4. FLUOXETINE [Suspect]
     Active Substance: FLUOXETINE HYDROCHLORIDE
     Indication: Major depression
  5. FLUTICASONE [Suspect]
     Active Substance: FLUTICASONE
     Indication: Hypersensitivity
     Dosage: 50 MCG/ACTUATION, 1 SPRAY 2 TIMES PER DAY AS NEEDED
  6. BUDESONIDE\FORMOTEROL [Suspect]
     Active Substance: BUDESONIDE\FORMOTEROL
     Indication: Chronic obstructive pulmonary disease
     Dosage: 80-4.5 MCG/ACTUATION, 1 INHALATION 2 TIMES PER DAY
     Route: 055
  7. ASPIRIN [Suspect]
     Active Substance: ASPIRIN
     Indication: Prophylaxis
     Dosage: 1 TABLET ONCE A DAY
  8. DULOXETINE [Suspect]
     Active Substance: DULOXETINE
     Indication: Anxiety disorder
     Dosage: 1 TABLET IN THE MORNING
  9. DULOXETINE [Suspect]
     Active Substance: DULOXETINE
     Indication: Major depression
  10. AMLODIPINE [Suspect]
     Active Substance: AMLODIPINE BESYLATE
     Indication: Hypertension
     Dosage: 1 TABLET ONCE A DAY
  11. HYDROCHLOROTHIAZIDE [Suspect]
     Active Substance: HYDROCHLOROTHIAZIDE
     Indication: Hypertension
     Dosage: 1 TABLET ONCE A DAY
  12. MELATONIN [Suspect]
     Active Substance: MELATONIN
     Indication: Insomnia
     Dosage: 1 TABLET AT BEDTIME
  13. CHOLECALCIFEROL [Suspect]
     Active Substance: CHOLECALCIFEROL
     Indication: Supplementation therapy
     Dosage: 1000 INTL UNITS 1 TABLET ONCE A DAY
  14. CALCIUM CARBONATE\CHOLECALCIFEROL [Suspect]
     Active Substance: CALCIUM CARBONATE\CHOLECALCIFEROL
     Indication: Supplementation therapy
     Dosage: 600 MG (1500 MG) - 800 UNIT, 1 TABLET 2 TIMES PER DAY
  15. OXYCODONE [Suspect]
     Active Substance: OXYCODONE
     Indication: Pain
     Dosage: 1 TABLET 3 TIMES PER DAY
  16. LEVOTHYROXINE [Suspect]
     Active Substance: LEVOTHYROXINE
     Indication: Hypothyroidism
     Dosage: 50 MCG, 1 TABLET ONCE A DAY
  17. NALOXONE [Suspect]
     Active Substance: NALOXONE
     Indication: Overdose
     Dosage: 4 MG/ACTUATION, 1 SPRAY INTO 1 NOSTRIL EVERY 2 MINUTES AS NEEDED
     Route: 055

REACTIONS (3)
  - Myalgia [Recovered/Resolved]
  - Drug-genetic interaction [Unknown]
  - Multiple drug therapy [Unknown]
